FAERS Safety Report 9748514 (Version 2)
Quarter: 2014Q1

REPORT INFORMATION
  Report Type: Spontaneous
  Country: JP (occurrence: JP)
  Receive Date: 20131212
  Receipt Date: 20140115
  Transmission Date: 20141002
  Serious: No
  Sender: FDA-Public Use
  Company Number: JP-SA-2013SA126977

PATIENT
  Age: 85 Year
  Sex: Female

DRUGS (3)
  1. AMARYL [Suspect]
     Indication: TYPE 2 DIABETES MELLITUS
     Route: 048
  2. AMARYL [Suspect]
     Indication: TYPE 2 DIABETES MELLITUS
     Route: 048
     Dates: start: 20131021, end: 20131204
  3. EQUA [Concomitant]
     Indication: DIABETES MELLITUS
     Route: 048

REACTIONS (3)
  - Hypoglycaemia [Recovered/Resolved]
  - Cold sweat [Recovered/Resolved]
  - Blood pressure decreased [Recovered/Resolved]
